FAERS Safety Report 11335254 (Version 2)
Quarter: 2015Q3

REPORT INFORMATION
  Report Type: Report from Study
  Country: BR (occurrence: BR)
  Receive Date: 20150804
  Receipt Date: 20150915
  Transmission Date: 20151125
  Serious: Yes (Hospitalization)
  Sender: FDA-Public Use
  Company Number: BR-BIOGENIDEC-2014BI091680

PATIENT
  Age: 35 Year
  Sex: Female

DRUGS (6)
  1. AVONEX [Suspect]
     Active Substance: INTERFERON BETA-1A
     Indication: MULTIPLE SCLEROSIS
     Route: 030
     Dates: start: 20120623, end: 201507
  2. VERTIX D (FLUNARIZINE HCL) [Concomitant]
     Indication: LABYRINTHITIS
     Dates: start: 201507
  3. AVONEX [Suspect]
     Active Substance: INTERFERON BETA-1A
     Indication: MULTIPLE SCLEROSIS
     Route: 030
     Dates: start: 201108
  4. VERTIX D (FLUNARIZINE HCL) [Concomitant]
     Indication: BALANCE DISORDER
     Dates: start: 201507
  5. MANTIDAM [Concomitant]
     Indication: ASTHENIA
     Dates: start: 201503
  6. VENLAFAXINE [Concomitant]
     Active Substance: VENLAFAXINE HYDROCHLORIDE
     Dates: start: 2012

REACTIONS (10)
  - Nuclear magnetic resonance imaging abnormal [Unknown]
  - Injection site haemorrhage [Not Recovered/Not Resolved]
  - Injection site bruising [Not Recovered/Not Resolved]
  - Multiple sclerosis [Unknown]
  - General physical health deterioration [Not Recovered/Not Resolved]
  - Headache [Recovered/Resolved]
  - Polymenorrhoea [Not Recovered/Not Resolved]
  - Food poisoning [Recovered/Resolved with Sequelae]
  - Multiple sclerosis relapse [Recovered/Resolved with Sequelae]
  - Injection site induration [Not Recovered/Not Resolved]

NARRATIVE: CASE EVENT DATE: 20120623
